FAERS Safety Report 6713511-0 (Version None)
Quarter: 2010Q2

REPORT INFORMATION
  Report Type: 
  Country: None (occurrence: None)
  Receive Date: 20100506
  Receipt Date: 20100426
  Transmission Date: 20101027
  Serious: Yes (Hospitalization)
  Sender: FDA-Public Use
  Company Number: FI-ELI_LILLY_AND_COMPANY-FI201003005927

PATIENT
  Sex: Male
  Weight: 71 kg

DRUGS (8)
  1. PEMETREXED [Suspect]
     Indication: NON-SMALL CELL LUNG CANCER
     Dosage: 500 MG/M2, ON DAY 1 EVERY 21 DAYS
     Route: 042
     Dates: start: 20100311, end: 20100401
  2. CISPLATIN [Suspect]
     Indication: NON-SMALL CELL LUNG CANCER
     Dosage: 75 MG/M2, ON DAY 1 EVERY 21 DAYS
     Route: 042
     Dates: start: 20100311, end: 20100401
  3. FOLIC ACID [Concomitant]
     Indication: PROPHYLAXIS
     Dosage: UNK, UNKNOWN
     Dates: start: 20100225
  4. VITAMIN B-12 [Concomitant]
     Indication: PROPHYLAXIS
     Dosage: UNK, UNKNOWN
     Dates: start: 20100225
  5. DEXAMETHASONE [Concomitant]
     Indication: PROPHYLAXIS
     Dosage: UNK, UNKNOWN
     Dates: start: 20100310
  6. ENOXAPARIN SODIUM [Concomitant]
     Indication: DEEP VEIN THROMBOSIS
     Dosage: UNK, UNKNOWN
     Dates: start: 20100308
  7. CODEINE W/PARACETAMOL [Concomitant]
     Indication: PAIN
     Dosage: UNK, UNKNOWN
     Dates: start: 20100101
  8. LACTULOSE [Concomitant]
     Indication: CONSTIPATION
     Dosage: UNK, UNKNOWN
     Dates: start: 20100309

REACTIONS (1)
  - CEREBRAL INFARCTION [None]
